FAERS Safety Report 24459183 (Version 1)
Quarter: 2024Q4

REPORT INFORMATION
  Report Type: Report from Study
  Country: US (occurrence: US)
  Receive Date: 20241018
  Receipt Date: 20241018
  Transmission Date: 20250115
  Serious: No
  Sender: ROCHE
  Company Number: US-ROCHE-3516683

PATIENT
  Age: 41 Year
  Sex: Female

DRUGS (4)
  1. RITUXAN [Suspect]
     Active Substance: RITUXIMAB
     Indication: Immune thrombocytopenia
     Dosage: DATE OF SERVICE: 10/MAY/2024
     Route: 042
  2. RITUXAN [Suspect]
     Active Substance: RITUXIMAB
     Indication: Complication associated with device
  3. RITUXAN [Suspect]
     Active Substance: RITUXIMAB
     Indication: Congenital thrombocytopenia
  4. CATHFLO ACTIVASE [Suspect]
     Active Substance: ALTEPLASE
     Indication: Product used for unknown indication
     Route: 065
     Dates: start: 20211023

REACTIONS (2)
  - Off label use [Unknown]
  - No adverse event [Unknown]
